FAERS Safety Report 9471755 (Version 2)
Quarter: 2013Q3

REPORT INFORMATION
  Report Type: Spontaneous
  Country: CA (occurrence: CA)
  Receive Date: 20130822
  Receipt Date: 20130826
  Transmission Date: 20140515
  Serious: Yes (Other)
  Sender: FDA-Public Use
  Company Number: CA-GLAXOSMITHKLINE-A1038295A

PATIENT
  Age: 73 Year
  Sex: Female
  Weight: 57.3 kg

DRUGS (1)
  1. ADVAIR [Suspect]
     Indication: ILL-DEFINED DISORDER
     Dosage: 1PUFF TWICE PER DAY
     Route: 055
     Dates: start: 201201

REACTIONS (4)
  - Pneumonia [Recovered/Resolved]
  - Bronchitis [Unknown]
  - Nasopharyngitis [Unknown]
  - Product quality issue [Unknown]
